FAERS Safety Report 5678213-0 (Version None)
Quarter: 2008Q1

REPORT INFORMATION
  Report Type: 
  Country: None (occurrence: None)
  Receive Date: 20080324
  Receipt Date: 20080324
  Transmission Date: 20080703
  Serious: Yes (Other)
  Sender: FDA-Public Use
  Company Number: None

PATIENT
  Sex: Female
  Weight: 63.5036 kg

DRUGS (1)
  1. VARENICLINE   0.5MG   PFIZER [Suspect]
     Indication: SMOKING CESSATION THERAPY
     Dosage: 0.5 MG DAILY PO
     Route: 048
     Dates: start: 20070128, end: 20070425

REACTIONS (5)
  - DRY SKIN [None]
  - HYPOTHYROIDISM [None]
  - SKIN EXFOLIATION [None]
  - SLUGGISHNESS [None]
  - WEIGHT INCREASED [None]
